FAERS Safety Report 9921264 (Version 1)
Quarter: 2014Q1

REPORT INFORMATION
  Report Type: Report from Study
  Country: US (occurrence: US)
  Receive Date: 20140225
  Receipt Date: 20140225
  Transmission Date: 20141002
  Serious: Yes (Death)
  Sender: FDA-Public Use
  Company Number: US-ROCHE-1352540

PATIENT
  Sex: Male
  Weight: 64.5 kg

DRUGS (6)
  1. AVASTIN [Suspect]
     Indication: BRONCHIAL CARCINOMA
     Route: 041
     Dates: start: 20120807
  2. AVASTIN [Suspect]
     Indication: LUNG NEOPLASM MALIGNANT
     Route: 042
     Dates: start: 20120119
  3. AVASTIN [Suspect]
     Route: 042
     Dates: start: 20121011
  4. CARBOPLATIN [Concomitant]
  5. ALIMTA [Concomitant]
  6. XGEVA [Concomitant]

REACTIONS (2)
  - Death [Fatal]
  - Impaired work ability [Unknown]
